FAERS Safety Report 6450695-6 (Version None)
Quarter: 2009Q4

REPORT INFORMATION
  Report Type: 
  Country: None (occurrence: None)
  Receive Date: 20091123
  Receipt Date: 20091109
  Transmission Date: 20100525
  Serious: Yes (Hospitalization)
  Sender: FDA-Public Use
  Company Number: US-ELI_LILLY_AND_COMPANY-US200911002092

PATIENT
  Age: 54 Year
  Sex: Female

DRUGS (10)
  1. FORTEO [Suspect]
     Dosage: 20 UG, DAILY (1/D)
     Dates: start: 20090929, end: 20090930
  2. FORTEO [Suspect]
     Dosage: 20 UG, DAILY (1/D)
     Dates: start: 20091009
  3. GABAPENTIN [Concomitant]
     Dosage: 400 MG, OTHER
  4. HYDROCODONE [Concomitant]
     Dosage: 660 MG, EVERY 6 HRS
  5. METHOCARBAMOL [Concomitant]
     Dosage: 1000 MG, UNK
  6. CRESTOR [Concomitant]
  7. LEVOTHYROXINE SODIUM [Concomitant]
     Dosage: 75 UG, UNK
  8. VITAMINS NOS [Concomitant]
  9. CALCIUM [Concomitant]
  10. CLONAZEPAM [Concomitant]
     Dosage: 0.5 MG, AS NEEDED

REACTIONS (5)
  - INJECTION SITE HAEMATOMA [None]
  - LUMBAR VERTEBRAL FRACTURE [None]
  - PAIN [None]
  - THORACIC VERTEBRAL FRACTURE [None]
  - VOMITING [None]
